FAERS Safety Report 7504972-8 (Version None)
Quarter: 2011Q2

REPORT INFORMATION
  Report Type: 
  Country: None (occurrence: None)
  Receive Date: 20110526
  Receipt Date: 20110513
  Transmission Date: 20111010
  Serious: No
  Sender: FDA-Public Use
  Company Number: US-BIOGENIDEC-2011BI002000

PATIENT
  Age: 59 Year
  Sex: Male

DRUGS (1)
  1. TYSABRI [Suspect]
     Indication: MULTIPLE SCLEROSIS
     Route: 042
     Dates: start: 20100204

REACTIONS (10)
  - MUSCLE SPASMS [None]
  - MUSCLE SPASTICITY [None]
  - PAIN IN EXTREMITY [None]
  - PROGRESSIVE MULTIPLE SCLEROSIS [None]
  - CONFUSIONAL STATE [None]
  - MUSCLE FATIGUE [None]
  - FATIGUE [None]
  - HYPOAESTHESIA [None]
  - BALANCE DISORDER [None]
  - APHASIA [None]
